FAERS Safety Report 4684746-6 (Version None)
Quarter: 2005Q2

REPORT INFORMATION
  Report Type: 
  Country: None (occurrence: None)
  Receive Date: 20050603
  Receipt Date: 20050519
  Transmission Date: 20051028
  Serious: Yes (Hospitalization)
  Sender: FDA-Public Use
  Company Number: 214628

PATIENT
  Age: 56 Year
  Sex: Female

DRUGS (6)
  1. MABTHERA (RITUXIMAB) CONC FOR SOLUTION FOR INFUSION [Suspect]
     Indication: NON-HODGKIN'S LYMPHOMA
     Dosage: INTRAVENOUS
     Route: 042
     Dates: end: 20050501
  2. IFOSFAMIDE [Suspect]
     Indication: NON-HODGKIN'S LYMPHOMA
  3. CARBOPLATIN [Suspect]
     Indication: NON-HODGKIN'S LYMPHOMA
  4. ETOPOSIDE [Suspect]
     Indication: NON-HODGKIN'S LYMPHOMA
  5. LEVOTHYROXINE SODIUM [Concomitant]
  6. BETA-BLOCKING AGENTS (BETA BLOCKERS NOS) [Concomitant]

REACTIONS (1)
  - HERPES ZOSTER [None]
